FAERS Safety Report 17957662 (Version 1)
Quarter: 2020Q2

REPORT INFORMATION
  Report Type: Spontaneous
  Country: NL (occurrence: NL)
  Receive Date: 20200629
  Receipt Date: 20200629
  Transmission Date: 20200714
  Serious: Yes (Disabling)
  Sender: FDA-Public Use
  Company Number: NL-LEO PHARMA-330255

PATIENT
  Age: 33 Year
  Sex: Female
  Weight: 59 kg

DRUGS (3)
  1. PROTOPIC [Suspect]
     Active Substance: TACROLIMUS
     Indication: DERMATITIS ATOPIC
     Dosage: 5 X PER WEEK, 1 X PER DAY
     Dates: start: 201512, end: 20200315
  2. PROTOPIC [Suspect]
     Active Substance: TACROLIMUS
     Indication: ECZEMA
  3. VARIOUS TOPICAL CORTICOSTEROIDS [Concomitant]
     Indication: PRODUCT USED FOR UNKNOWN INDICATION
     Dosage: CREAM / OINTMENT, DIFFERENT STRENGTHS
     Route: 061

REACTIONS (4)
  - Skin exfoliation [Recovering/Resolving]
  - Steroid withdrawal syndrome [Unknown]
  - Erythema [Recovering/Resolving]
  - Skin burning sensation [Recovering/Resolving]

NARRATIVE: CASE EVENT DATE: 20160301
